FAERS Safety Report 19987106 (Version 3)
Quarter: 2023Q2

REPORT INFORMATION
  Report Type: Report from Study
  Country: BR (occurrence: BR)
  Receive Date: 20211022
  Receipt Date: 20230526
  Transmission Date: 20230721
  Serious: Yes (Life-Threatening)
  Sender: FDA-Public Use
  Company Number: BR-GLAXOSMITHKLINE-BR2021215381

PATIENT

DRUGS (10)
  1. BELANTAMAB MAFODOTIN [Suspect]
     Active Substance: BELANTAMAB MAFODOTIN
     Indication: Plasma cell myeloma
     Dosage: 143.75 MG, CYC
     Route: 042
     Dates: start: 20210617, end: 20210617
  2. BELANTAMAB MAFODOTIN [Suspect]
     Active Substance: BELANTAMAB MAFODOTIN
     Dosage: 109.25 MG, CYC
     Route: 042
     Dates: start: 20210708, end: 20210930
  3. BELANTAMAB MAFODOTIN [Suspect]
     Active Substance: BELANTAMAB MAFODOTIN
     Dosage: 143.75 MG, CYC
     Route: 042
     Dates: start: 20211222, end: 20211222
  4. BELANTAMAB MAFODOTIN [Suspect]
     Active Substance: BELANTAMAB MAFODOTIN
     Dosage: 109.25 MG, CYC
     Route: 042
     Dates: start: 20220428, end: 20221103
  5. BORTEZOMIB [Suspect]
     Active Substance: BORTEZOMIB
     Indication: Plasma cell myeloma
     Dosage: 2.11 MG, CYC
     Route: 058
     Dates: start: 20210617, end: 20210628
  6. BORTEZOMIB [Suspect]
     Active Substance: BORTEZOMIB
     Dosage: 1.62 MG, CYC
     Route: 058
     Dates: start: 20210708, end: 20211213
  7. DEXAMETHASONE [Suspect]
     Active Substance: DEXAMETHASONE
     Indication: Plasma cell myeloma
     Dosage: 20 MG, CYC
     Route: 042
     Dates: start: 20210617, end: 20210930
  8. DEXAMETHASONE [Suspect]
     Active Substance: DEXAMETHASONE
     Indication: Plasma cell myeloma
     Dosage: 20 MG, QD
     Route: 048
     Dates: start: 20210618, end: 20211005
  9. DEXAMETHASONE [Suspect]
     Active Substance: DEXAMETHASONE
     Dosage: 12 MG, QD
     Route: 048
     Dates: start: 20211007, end: 20211214
  10. OXYGEN [Concomitant]
     Active Substance: OXYGEN
     Indication: Oxygen saturation
     Dosage: UNK UNK, CO
     Route: 045
     Dates: start: 20210909, end: 20210923

REACTIONS (1)
  - COVID-19 pneumonia [Recovered/Resolved]

NARRATIVE: CASE EVENT DATE: 20210907
